FAERS Safety Report 10302064 (Version 3)
Quarter: 2014Q3

REPORT INFORMATION
  Report Type: Spontaneous
  Country: DE (occurrence: DE)
  Receive Date: 20140714
  Receipt Date: 20140818
  Transmission Date: 20150326
  Serious: Yes (Life-Threatening, Hospitalization, Other)
  Sender: FDA-Public Use
  Company Number: DE-SA-2014SA090491

PATIENT
  Age: 43 Year
  Sex: Female
  Weight: 120 kg

DRUGS (2)
  1. ZOPICLON [Concomitant]
     Active Substance: ZOPICLONE
     Indication: SLEEP DISORDER
     Route: 048
     Dates: start: 20131122
  2. AUBAGIO [Suspect]
     Active Substance: TERIFLUNOMIDE
     Indication: MULTIPLE SCLEROSIS
     Route: 048
     Dates: start: 20131021

REACTIONS (10)
  - Myocardial infarction [Unknown]
  - Asthenia [Unknown]
  - Visual field defect [Recovered/Resolved]
  - Impaired healing [Recovering/Resolving]
  - Coronary artery disease [Unknown]
  - Pleural effusion [Unknown]
  - Pain [Unknown]
  - Angina pectoris [Unknown]
  - Multiple sclerosis relapse [Unknown]
  - Respiratory failure [Unknown]

NARRATIVE: CASE EVENT DATE: 201404
